FAERS Safety Report 8866191 (Version 1)
Quarter: 2012Q4

REPORT INFORMATION
  Report Type: 
  Country: CO (occurrence: CO)
  Receive Date: 20121025
  Receipt Date: 20121025
  Transmission Date: 20130627
  Serious: Yes (Disabling)
  Sender: FDA-Public Use
  Company Number: PHHY2012CO094679

PATIENT
  Sex: Male

DRUGS (1)
  1. ONBREZ [Suspect]
     Indication: CHRONIC OBSTRUCTIVE PULMONARY DISEASE
     Dosage: 150 ug, UNK

REACTIONS (3)
  - Muscular weakness [Recovered/Resolved]
  - Ileus paralytic [Recovered/Resolved]
  - Hypokalaemia [Recovered/Resolved]
